FAERS Safety Report 26048307 (Version 1)
Quarter: 2025Q4

REPORT INFORMATION
  Report Type: Spontaneous
  Country: US (occurrence: US)
  Receive Date: 20251114
  Receipt Date: 20251114
  Transmission Date: 20260118
  Serious: Yes (Life-Threatening, Other)
  Sender: PFIZER
  Company Number: US-PFIZER INC-PV202500132333

PATIENT
  Age: 54 Year
  Sex: Female

DRUGS (1)
  1. TRANEXAMIC ACID [Suspect]
     Active Substance: TRANEXAMIC ACID
     Indication: Heavy menstrual bleeding
     Dosage: 1300 MG, 3X/DAY, ON AN AS NEEDED BASIS
     Route: 048

REACTIONS (2)
  - Acute myocardial infarction [Unknown]
  - Off label use [Unknown]
